FAERS Safety Report 7365496-4 (Version None)
Quarter: 2011Q1

REPORT INFORMATION
  Report Type: 
  Country: None (occurrence: None)
  Receive Date: 20110322
  Receipt Date: 20081001
  Transmission Date: 20110831
  Serious: Yes (Other)
  Sender: FDA-Public Use
  Company Number: US-BAYER-201041908NA

PATIENT
  Sex: Female
  Weight: 49.887 kg

DRUGS (19)
  1. TRASYLOL [Suspect]
     Dosage: 50 ML/HR
     Dates: start: 20061117, end: 20061117
  2. ISOVUE-128 [Concomitant]
  3. MONOPRIL [Concomitant]
     Indication: HYPERTENSION
     Dosage: UNK
     Route: 048
     Dates: start: 20040101
  4. TRASYLOL [Suspect]
     Indication: MITRAL VALVE REPLACEMENT
     Dosage: 200 ML, UNK
     Dates: start: 20061117, end: 20061117
  5. HEPARIN [Concomitant]
     Dosage: 5000 U, UNK
     Dates: start: 20061117, end: 20061117
  6. CAPTOPRIL [Concomitant]
     Indication: HYPERTENSION
     Dosage: UNK
     Route: 048
     Dates: start: 19800101
  7. THROMBIN LOCAL SOLUTION [Concomitant]
     Dosage: 20 MU
     Route: 042
     Dates: start: 20061117, end: 20061117
  8. AMIODARONE HCL [Concomitant]
     Dosage: 30 MG, UNK
     Route: 042
     Dates: start: 20061117, end: 20061117
  9. TRASYLOL [Suspect]
     Indication: CORONARY ARTERY BYPASS
     Dosage: 1 ML, UNK
     Dates: start: 20061117, end: 20061117
  10. METOPROLOL [Concomitant]
     Indication: HYPERTENSION
     Dosage: 100 MG, UNK
     Dates: start: 20051130
  11. ESTROGENIC SUBSTANCE [Concomitant]
     Dosage: UNK
     Dates: start: 20050506
  12. ATARAX [Concomitant]
     Indication: PRURITUS
     Dosage: 25 MG, PRN
     Dates: start: 20050422
  13. VICODIN [Concomitant]
     Dosage: 5/500, PRN
     Dates: start: 20050422
  14. METHYLPREDNISOLONE [Concomitant]
     Dosage: 1 G, UNK
     Dates: start: 20061117, end: 20061117
  15. NOREPINEPHRINE BITARTRATE [Concomitant]
     Dosage: 4 MG/4 ML
     Route: 042
     Dates: start: 20061117, end: 20061117
  16. EPHEDRINE [Concomitant]
     Dosage: 50 MG/1 ML
     Route: 042
     Dates: start: 20061117, end: 20061117
  17. IBUPROFEN [Concomitant]
     Dosage: UNK UNK, PRN
     Route: 048
  18. EPINEPHRINE [Concomitant]
     Dosage: 1 MG/1 ML
     Route: 042
     Dates: start: 20061117, end: 20061117
  19. CLONAZEPAM [Concomitant]
     Dosage: 0.5 MG, QD
     Dates: start: 20050422

REACTIONS (6)
  - ANXIETY [None]
  - CEREBROVASCULAR ACCIDENT [None]
  - EMOTIONAL DISTRESS [None]
  - PAIN [None]
  - PARALYSIS [None]
  - INJURY [None]
